FAERS Safety Report 9062683 (Version 1)
Quarter: 2013Q1

REPORT INFORMATION
  Report Type: Spontaneous
  Country: US (occurrence: US)
  Receive Date: 20130125
  Receipt Date: 20130125
  Transmission Date: 20140127
  Serious: No
  Sender: FDA-Public Use
  Company Number: US-VIIV HEALTHCARE LIMITED-A0976279A

PATIENT
  Sex: 0

DRUGS (1)
  1. LAMIVUDINE-HIV [Suspect]
     Route: 065

REACTIONS (1)
  - Adverse event [Unknown]
